FAERS Safety Report 14832468 (Version 1)
Quarter: 2018Q2

REPORT INFORMATION
  Report Type: Spontaneous
  Country: US (occurrence: US)
  Receive Date: 20180501
  Receipt Date: 20180501
  Transmission Date: 20180711
  Serious: No
  Sender: FDA-Public Use
  Company Number: US-MYLANLABS-2018M1026764

PATIENT
  Sex: Male
  Weight: 77 kg

DRUGS (1)
  1. LEVOTHYROXINE. [Suspect]
     Active Substance: LEVOTHYROXINE
     Indication: HYPOTHYROIDISM
     Dosage: 100 (UNKNOWN UNIT)
     Route: 048
     Dates: start: 20180408

REACTIONS (4)
  - Dyspnoea [Not Recovered/Not Resolved]
  - Intentional product misuse [Unknown]
  - Malaise [Unknown]
  - Rhinorrhoea [Not Recovered/Not Resolved]
